FAERS Safety Report 8400649-5 (Version None)
Quarter: 2012Q2

REPORT INFORMATION
  Report Type: 
  Country: None (occurrence: None)
  Receive Date: 20120531
  Receipt Date: 20120531
  Transmission Date: 20120825
  Serious: Yes (Hospitalization)
  Sender: FDA-Public Use
  Company Number: SE-ROCHE-1073795

PATIENT
  Age: 59 Year
  Sex: Male

DRUGS (9)
  1. IMOVANE [Concomitant]
  2. MABTHERA [Suspect]
     Indication: RHEUMATOID ARTHRITIS
     Dosage: 1 GMN
     Route: 042
     Dates: start: 20120516, end: 20120516
  3. OMEPRAZOLE [Concomitant]
  4. ALVEDON [Concomitant]
  5. CETIRIZINE HCL [Concomitant]
  6. LERGIGAN [Concomitant]
  7. PREDNISOLONE [Concomitant]
  8. BUPRENORPHINE [Concomitant]
  9. PREDNISONE [Concomitant]

REACTIONS (1)
  - CONVULSION [None]
